FAERS Safety Report 5701715-5 (Version None)
Quarter: 2008Q2

REPORT INFORMATION
  Report Type: 
  Country: None (occurrence: None)
  Receive Date: 20080409
  Receipt Date: 20080409
  Transmission Date: 20081010
  Serious: Yes (Other)
  Sender: FDA-Public Use
  Company Number: None

PATIENT
  Sex: Male
  Weight: 25.855 kg

DRUGS (1)
  1. SINGULAIR [Suspect]
     Indication: MULTIPLE ALLERGIES
     Dosage: 5MG  Q D  PO
     Route: 048
     Dates: start: 20050101, end: 20080301

REACTIONS (8)
  - ABDOMINAL PAIN UPPER [None]
  - ABNORMAL BEHAVIOUR [None]
  - ANXIETY [None]
  - DECREASED APPETITE [None]
  - EMOTIONAL DISORDER [None]
  - HEADACHE [None]
  - MOOD SWINGS [None]
  - WEIGHT DECREASED [None]
